FAERS Safety Report 9897641 (Version 2)
Quarter: 2014Q1

REPORT INFORMATION
  Report Type: Spontaneous
  Country: US (occurrence: US)
  Receive Date: 20140214
  Receipt Date: 20140214
  Transmission Date: 20141002
  Serious: Yes (Other)
  Sender: FDA-Public Use
  Company Number: US-BEH-2013038348

PATIENT
  Age: 61 Year
  Sex: Female
  Weight: 59 kg

DRUGS (32)
  1. PRIVIGEN [Suspect]
     Dosage: 10 GM VIAL; OVER 2.5 TO 5 HOURS
     Route: 042
  2. PRIVIGEN [Suspect]
     Dosage: 10 GM VIAL; OVER 2.5 TO 5 HOURS
     Route: 042
  3. PRIVIGEN [Suspect]
     Indication: HYPOGLOBULINAEMIA
     Dosage: 10 GM VIAL; 300ML/2.5-5 HOURS
     Route: 042
  4. PRIVIGEN [Suspect]
     Dosage: OVER 2.5 TO 5 HOURS
     Route: 042
  5. PRIVIGEN [Suspect]
     Dosage: OVER 2.5-5 HOURS
     Route: 042
  6. FLUTICASONE [Concomitant]
  7. CLINDAMYCIN [Concomitant]
  8. DIPHENHYDRAMINE [Concomitant]
  9. SODIUM CHLORIDE [Concomitant]
  10. EPIPEN [Concomitant]
  11. SINGULAIR [Concomitant]
  12. PREMARIN [Concomitant]
     Route: 067
  13. TRAMADOL [Concomitant]
  14. PROMETHAZINE [Concomitant]
  15. OMEPRAZOLE [Concomitant]
  16. IPRATROPIUM [Concomitant]
  17. HYDROCODONE APAP [Concomitant]
  18. ZYRTEC [Concomitant]
  19. ESGIC [Concomitant]
  20. CALCIUM D [Concomitant]
  21. SPIRIVA [Concomitant]
  22. METHYLCELLULOSE [Concomitant]
  23. MULTIVITAMIN [Concomitant]
     Route: 048
  24. EVISTA [Concomitant]
  25. TOPIRAMATE [Concomitant]
  26. SIMVASTATIN [Concomitant]
  27. SYMBICORT [Concomitant]
  28. CYCLOBENZAPRINE [Concomitant]
  29. ESTRACE [Concomitant]
  30. BUTALBITAL-ASA-CAFFEINE [Concomitant]
  31. MILK OF MAGNESIA [Concomitant]
  32. ALBUTEROL SULF [Concomitant]

REACTIONS (9)
  - Pneumonia [Unknown]
  - Sinusitis [Unknown]
  - Bronchitis [Unknown]
  - Migraine [Unknown]
  - Sinusitis [Unknown]
  - Eye infection [Unknown]
  - Ear infection [Unknown]
  - Rhinitis [Unknown]
  - Pharyngitis [Unknown]
